FAERS Safety Report 6615379-X (Version None)
Quarter: 2010Q1

REPORT INFORMATION
  Report Type: 
  Country: None (occurrence: None)
  Receive Date: 20100305
  Receipt Date: 20091204
  Transmission Date: 20100710
  Serious: No
  Sender: FDA-Public Use
  Company Number: A0808712A

PATIENT
  Sex: Female

DRUGS (8)
  1. REQUIP [Suspect]
     Indication: RESTLESS LEGS SYNDROME
     Route: 048
     Dates: start: 20060105
  2. EFFEXOR [Concomitant]
  3. KLONOPIN [Concomitant]
  4. LEXAPRO [Concomitant]
  5. SYNTHROID [Concomitant]
  6. WELLBUTRIN XL [Concomitant]
  7. TORADOL [Concomitant]
  8. RELPAX [Concomitant]

REACTIONS (1)
  - OBSESSIVE-COMPULSIVE DISORDER [None]
